FAERS Safety Report 4312276-X (Version None)
Quarter: 2004Q1

REPORT INFORMATION
  Report Type: 
  Country: None (occurrence: None)
  Receive Date: 20040303
  Receipt Date: 20040223
  Transmission Date: 20041129
  Serious: Yes (Death)
  Sender: FDA-Public Use
  Company Number: USA-2004-0013289

PATIENT
  Age: 58 Year
  Sex: Male
  Weight: 59.9 kg

DRUGS (3)
  1. OXYCONTIN [Suspect]
  2. CAFFEINE (CAFFEINE) [Suspect]
  3. VIOXX [Concomitant]

REACTIONS (21)
  - ACCIDENTAL OVERDOSE [None]
  - ADRENAL DISORDER [None]
  - AGE INDETERMINATE MYOCARDIAL INFARCTION [None]
  - AORTIC ATHEROSCLEROSIS [None]
  - ATHEROSCLEROSIS [None]
  - CALCINOSIS [None]
  - CEREBRAL ATHEROSCLEROSIS [None]
  - CEREBRAL ATROPHY [None]
  - CHRONIC OBSTRUCTIVE AIRWAYS DISEASE [None]
  - COMA [None]
  - DILATATION VENTRICULAR [None]
  - DRUG TOXICITY [None]
  - ECCHYMOSIS [None]
  - EMPHYSEMA [None]
  - HEPATIC NEOPLASM [None]
  - HYDROCEPHALUS [None]
  - LYMPH NODE CALCIFICATION [None]
  - MALNUTRITION [None]
  - NEPHROSCLEROSIS [None]
  - SKIN DISORDER [None]
  - SPLEEN DISORDER [None]
